FAERS Safety Report 8231174-2 (Version None)
Quarter: 2012Q1

REPORT INFORMATION
  Report Type: 
  Country: None (occurrence: None)
  Receive Date: 20120323
  Receipt Date: 20120323
  Transmission Date: 20120608
  Serious: Yes (Hospitalization)
  Sender: FDA-Public Use
  Company Number: None

PATIENT
  Age: 86 Year
  Sex: Male
  Weight: 88 kg

DRUGS (13)
  1. EMLA -1 APP EX TTS- [Concomitant]
  2. MORPHINE SULFATE [Concomitant]
  3. FLUCONAZOLE [Concomitant]
     Dosage: 400MG
     Route: 041
     Dates: start: 20120309, end: 20120314
  4. COLCHICINE [Concomitant]
     Route: 048
  5. MANNITOL [Concomitant]
     Route: 042
  6. DIPRIVAN [Concomitant]
     Route: 042
  7. ETHYL CHLORIDE [Concomitant]
  8. DEPO-MEDROL [Concomitant]
     Route: 030
  9. LIDOCAINE HYDROCHLORIDE [Concomitant]
     Route: 042
  10. FLUCONAZOLE [Suspect]
     Indication: FUNGAL PERITONITIS
     Dosage: 200.0 MG
     Route: 041
     Dates: start: 20120306, end: 20120308
  11. ONDANSETRON HCL [Concomitant]
     Route: 042
  12. PHOSLO [Concomitant]
     Route: 048
  13. PROTONIX [Concomitant]
     Route: 048

REACTIONS (2)
  - DRY MOUTH [None]
  - HALLUCINATION, VISUAL [None]
